FAERS Safety Report 17058173 (Version 2)
Quarter: 2019Q4

REPORT INFORMATION
  Report Type: Report from Study
  Country: NL (occurrence: NL)
  Receive Date: 20191121
  Receipt Date: 20191210
  Transmission Date: 20200122
  Serious: Yes (Hospitalization)
  Sender: FDA-Public Use
  Company Number: NL-ASTRAZENECA-2019SF49152

PATIENT
  Age: 7 Month
  Sex: Male
  Weight: 7.3 kg

DRUGS (8)
  1. SYNAGIS [Suspect]
     Active Substance: PALIVIZUMAB
     Indication: HEART DISEASE CONGENITAL
     Dosage: MONTHLY
     Route: 030
     Dates: start: 20181227, end: 20190430
  2. SYNAGIS [Suspect]
     Active Substance: PALIVIZUMAB
     Indication: HEART DISEASE CONGENITAL
     Route: 030
     Dates: start: 20191015, end: 20191015
  3. SYNAGIS [Suspect]
     Active Substance: PALIVIZUMAB
     Indication: ANTIVIRAL PROPHYLAXIS
     Route: 030
     Dates: start: 20191015, end: 20191015
  4. FLIXOTIDE [Concomitant]
     Active Substance: FLUTICASONE PROPIONATE
     Indication: PRODUCT USED FOR UNKNOWN INDICATION
  5. SYNAGIS [Suspect]
     Active Substance: PALIVIZUMAB
     Indication: ANTIVIRAL PROPHYLAXIS
     Dosage: MONTHLY
     Route: 030
     Dates: start: 20181227, end: 20190430
  6. SYNAGIS [Suspect]
     Active Substance: PALIVIZUMAB
     Indication: HEART DISEASE CONGENITAL
     Route: 030
     Dates: start: 20191112
  7. SYNAGIS [Suspect]
     Active Substance: PALIVIZUMAB
     Indication: ANTIVIRAL PROPHYLAXIS
     Route: 030
     Dates: start: 20191112
  8. VITAMIN D [Concomitant]
     Active Substance: VITAMIN D NOS
     Indication: PRODUCT USED FOR UNKNOWN INDICATION

REACTIONS (5)
  - Respiratory tract infection [Recovered/Resolved]
  - Fluid intake reduced [Not Recovered/Not Resolved]
  - Vomiting [Not Recovered/Not Resolved]
  - Crying [Recovered/Resolved]
  - Growth retardation [Not Recovered/Not Resolved]

NARRATIVE: CASE EVENT DATE: 201907
